FAERS Safety Report 5412739-X (Version None)
Quarter: 2007Q3

REPORT INFORMATION
  Report Type: 
  Country: None (occurrence: None)
  Receive Date: 20070813
  Receipt Date: 20070803
  Transmission Date: 20080115
  Serious: Yes (Hospitalization)
  Sender: FDA-Public Use
  Company Number: US-ABBOTT-07P-163-0377120-00

PATIENT
  Sex: Female
  Weight: 74.91 kg

DRUGS (1)
  1. HUMIRA [Suspect]
     Indication: RHEUMATOID ARTHRITIS
     Route: 058
     Dates: start: 20070716, end: 20070730

REACTIONS (6)
  - BONE PAIN [None]
  - FACIAL BONES FRACTURE [None]
  - NASOPHARYNGITIS [None]
  - OVARIAN CYST [None]
  - PYREXIA [None]
  - SWELLING FACE [None]
